FAERS Safety Report 7324750-2 (Version None)
Quarter: 2011Q1

REPORT INFORMATION
  Report Type: 
  Country: None (occurrence: None)
  Receive Date: 20110301
  Receipt Date: 20110217
  Transmission Date: 20110831
  Serious: Yes (Hospitalization, Other)
  Sender: FDA-Public Use
  Company Number: US-ELI_LILLY_AND_COMPANY-US200910007211

PATIENT
  Age: 68 Year
  Sex: Female

DRUGS (1)
  1. FORTEO [Suspect]
     Indication: OSTEOPOROSIS

REACTIONS (5)
  - H1N1 INFLUENZA [None]
  - CARDIOMYOPATHY [None]
  - SOMNOLENCE [None]
  - MUSCLE SPASMS [None]
  - CARDIOVASCULAR DISORDER [None]
